FAERS Safety Report 13886559 (Version 1)
Quarter: 2017Q3

REPORT INFORMATION
  Report Type: Spontaneous
  Country: US (occurrence: US)
  Receive Date: 20170821
  Receipt Date: 20170821
  Transmission Date: 20171127
  Serious: No
  Sender: FDA-Public Use
  Company Number: US-ALLERGAN-1678377US

PATIENT
  Age: 37 Year
  Sex: Male

DRUGS (3)
  1. ANDRODERM [Suspect]
     Active Substance: TESTOSTERONE
     Indication: BLOOD TESTOSTERONE DECREASED
     Dosage: 1 DF, QD
     Route: 062
     Dates: start: 201611
  2. ANDRODERM [Suspect]
     Active Substance: TESTOSTERONE
     Dosage: UNK
  3. METFORMIN [Concomitant]
     Active Substance: METFORMIN HYDROCHLORIDE
     Indication: DIABETES MELLITUS
     Dosage: 200 MG, QD
     Route: 048

REACTIONS (5)
  - Application site pruritus [Recovered/Resolved]
  - Dry skin [Recovered/Resolved]
  - Product adhesion issue [Unknown]
  - Application site pain [Recovered/Resolved]
  - Application site erythema [Recovered/Resolved with Sequelae]

NARRATIVE: CASE EVENT DATE: 201611
